FAERS Safety Report 4639908-0 (Version None)
Quarter: 2005Q2

REPORT INFORMATION
  Report Type: 
  Country: None (occurrence: None)
  Receive Date: 20050328
  Receipt Date: 20050107
  Transmission Date: 20051028
  Serious: No
  Sender: FDA-Public Use
  Company Number: USA050187794

PATIENT
  Age: 6 Year
  Sex: Male

DRUGS (1)
  1. STRATTERA [Suspect]
     Indication: ATTENTION DEFICIT/HYPERACTIVITY DISORDER
     Dosage: 18 MG DAY
     Dates: start: 20050103

REACTIONS (3)
  - ABDOMINAL PAIN UPPER [None]
  - FATIGUE [None]
  - FEELING ABNORMAL [None]
